FAERS Safety Report 25124566 (Version 2)
Quarter: 2025Q2

REPORT INFORMATION
  Report Type: Spontaneous
  Country: US (occurrence: US)
  Receive Date: 20250326
  Receipt Date: 20250404
  Transmission Date: 20250717
  Serious: Yes (Life-Threatening, Hospitalization, Other)
  Sender: TORRENT
  Company Number: US-TORRENT-00014275

PATIENT
  Age: 25 Year
  Sex: Female

DRUGS (1)
  1. LEVETIRACETAM [Suspect]
     Active Substance: LEVETIRACETAM
     Indication: Epilepsy
     Route: 065

REACTIONS (5)
  - Cardiac arrest [Recovering/Resolving]
  - Ventricular tachycardia [Unknown]
  - Ventricular fibrillation [Unknown]
  - Syncope [Unknown]
  - Electrocardiogram QT prolonged [Recovering/Resolving]
